FAERS Safety Report 18437297 (Version 4)
Quarter: 2020Q4

REPORT INFORMATION
  Report Type: Report from Study
  Country: CA (occurrence: CA)
  Receive Date: 20201028
  Receipt Date: 20201222
  Transmission Date: 20210114
  Serious: Yes (Death, Hospitalization, Other)
  Sender: FDA-Public Use
  Company Number: CA-IPSEN BIOPHARMACEUTICALS, INC.-2020-11403

PATIENT
  Age: 72 Year
  Sex: Female

DRUGS (14)
  1. SOMATULINE AUTOGEL [Suspect]
     Active Substance: LANREOTIDE ACETATE
     Indication: NEUROENDOCRINE TUMOUR
     Route: 058
     Dates: start: 20200324, end: 2020
  2. SYNTHROID [Concomitant]
     Active Substance: LEVOTHYROXINE SODIUM
  3. METFORMIN [Concomitant]
     Active Substance: METFORMIN HYDROCHLORIDE
  4. PANTOLOC [Concomitant]
     Active Substance: PANTOPRAZOLE SODIUM
  5. GLICLAZIDE [Concomitant]
     Active Substance: GLICLAZIDE
  6. VITAMIN D [Concomitant]
     Active Substance: VITAMIN D NOS
  7. CLOPIDOGREL [Concomitant]
     Active Substance: CLOPIDOGREL BISULFATE
  8. AMLODIPINE [Concomitant]
     Active Substance: AMLODIPINE BESYLATE
  9. NORVASC [Concomitant]
     Active Substance: AMLODIPINE BESYLATE
  10. PLAVIX [Concomitant]
     Active Substance: CLOPIDOGREL BISULFATE
  11. AVAPRO [Concomitant]
     Active Substance: IRBESARTAN
  12. TRAMADOL. [Concomitant]
     Active Substance: TRAMADOL
  13. SOMATULINE AUTOGEL [Suspect]
     Active Substance: LANREOTIDE ACETATE
     Route: 058
     Dates: start: 20201030
  14. METOPROLOL. [Concomitant]
     Active Substance: METOPROLOL

REACTIONS (12)
  - Agitation [Unknown]
  - Death [Fatal]
  - Impaired quality of life [Not Recovered/Not Resolved]
  - Procedural pain [Recovering/Resolving]
  - Hepatic embolisation [Recovered/Resolved]
  - Fatigue [Not Recovered/Not Resolved]
  - Off label use [Unknown]
  - Tumour compression [Not Recovered/Not Resolved]
  - Headache [Not Recovered/Not Resolved]
  - Hepatic embolisation [Recovered/Resolved]
  - Delirium [Unknown]
  - Neoplasm progression [Not Recovered/Not Resolved]

NARRATIVE: CASE EVENT DATE: 2020
